FAERS Safety Report 4906704-6 (Version None)
Quarter: 2006Q1

REPORT INFORMATION
  Report Type: 
  Country: None (occurrence: None)
  Receive Date: 20060206
  Receipt Date: 20060124
  Transmission Date: 20060701
  Serious: Yes (Hospitalization)
  Sender: FDA-Public Use
  Company Number: USA-2006-0023427

PATIENT
  Sex: Male

DRUGS (5)
  1. OXYCONTIN [Suspect]
     Indication: PAIN
     Dosage: 160 MG, DAILY
  2. LORCET-HD [Concomitant]
  3. MUSCLE RELAXANTS [Concomitant]
  4. VALIUM [Concomitant]
  5. ANTIHYPERTENSIVES [Concomitant]

REACTIONS (1)
  - PNEUMONIA [None]
